FAERS Safety Report 6955694-3 (Version None)
Quarter: 2010Q3

REPORT INFORMATION
  Report Type: 
  Country: None (occurrence: None)
  Receive Date: 20100830
  Receipt Date: 20100825
  Transmission Date: 20110219
  Serious: Yes (Death)
  Sender: FDA-Public Use
  Company Number: GB-ABBOTT-10P-167-0665978-00

PATIENT
  Sex: Female
  Weight: 95 kg

DRUGS (3)
  1. HUMIRA [Suspect]
     Indication: RHEUMATOID ARTHRITIS
     Route: 058
     Dates: start: 20041115, end: 20050215
  2. METHOTREXATE [Concomitant]
     Indication: PRODUCT USED FOR UNKNOWN INDICATION
     Dates: start: 20021101
  3. LEFLUNOMIDE [Concomitant]
     Indication: PRODUCT USED FOR UNKNOWN INDICATION
     Dates: start: 20050215

REACTIONS (3)
  - PNEUMONIA [None]
  - PULMONARY FIBROSIS [None]
  - RHEUMATOID ARTHRITIS [None]
